FAERS Safety Report 6735140-5 (Version None)
Quarter: 2010Q2

REPORT INFORMATION
  Report Type: 
  Country: None (occurrence: None)
  Receive Date: 20100520
  Receipt Date: 20100520
  Transmission Date: 20101027
  Serious: Yes (Life-Threatening, Other)
  Sender: FDA-Public Use
  Company Number: None

PATIENT
  Sex: Male

DRUGS (3)
  1. METOPROLOL TARTRATE [Suspect]
     Indication: HYPERTENSION
     Dosage: 1 A DAY 50 MG FOR YEARS
  2. LISINOPRIL [Suspect]
     Indication: HYPERTENSION
     Dosage: 1 A DAY 10 MG FOR YEARS
  3. AMLODIPINE BESYLATE [Suspect]
     Dosage: 5 MG
     Dates: start: 20100318

REACTIONS (5)
  - DIZZINESS [None]
  - GAIT DISTURBANCE [None]
  - MYALGIA [None]
  - PAIN IN EXTREMITY [None]
  - VISION BLURRED [None]
